FAERS Safety Report 5610561-2 (Version None)
Quarter: 2008Q1

REPORT INFORMATION
  Report Type: 
  Country: None (occurrence: None)
  Receive Date: 20080201
  Receipt Date: 20080128
  Transmission Date: 20080703
  Serious: Yes (Other)
  Sender: FDA-Public Use
  Company Number: US-JNJFOC-20080107166

PATIENT
  Sex: Female
  Weight: 63.5 kg

DRUGS (3)
  1. CONCERTA [Suspect]
     Indication: ATTENTION DEFICIT/HYPERACTIVITY DISORDER
     Route: 048
  2. STEROID [Concomitant]
     Indication: UVEITIS
  3. STEROID [Concomitant]

REACTIONS (3)
  - EYELID PTOSIS [None]
  - INTRAOCULAR PRESSURE INCREASED [None]
  - PUPILLARY DISORDER [None]
